FAERS Safety Report 9962871 (Version 2)
Quarter: 2014Q1

REPORT INFORMATION
  Report Type: Report from Study
  Country: US (occurrence: US)
  Receive Date: 20140305
  Receipt Date: 20140305
  Transmission Date: 20141002
  Serious: No
  Sender: FDA-Public Use
  Company Number: US-ABBVIE-13P-163-1100145-00

PATIENT
  Age: 61 Year
  Sex: Female

DRUGS (7)
  1. HUMIRA [Suspect]
     Indication: CROHN^S DISEASE
     Dosage: 160MG ON 14 MAY 2013
     Dates: start: 20130514, end: 20130514
  2. ASACOL [Concomitant]
     Indication: PRODUCT USED FOR UNKNOWN INDICATION
  3. VITAMIN D [Concomitant]
     Indication: PRODUCT USED FOR UNKNOWN INDICATION
  4. CALCIUM [Concomitant]
     Indication: PRODUCT USED FOR UNKNOWN INDICATION
  5. VICODIN [Concomitant]
     Indication: PAIN
  6. TYLENOL WITH CODEIN #3 [Concomitant]
     Indication: PAIN
  7. TRAZODONE [Concomitant]
     Indication: INSOMNIA
     Dosage: 100MG AT BEDTIME

REACTIONS (4)
  - Herpes zoster [Not Recovered/Not Resolved]
  - Oral candidiasis [Not Recovered/Not Resolved]
  - Injection site reaction [Unknown]
  - Staphylococcal infection [Not Recovered/Not Resolved]
